FAERS Safety Report 13795073 (Version 2)
Quarter: 2018Q1

REPORT INFORMATION
  Report Type: Other
  Country: FR (occurrence: FR)
  Receive Date: 20170726
  Receipt Date: 20180129
  Transmission Date: 20180508
  Serious: Yes (Other)
  Sender: FDA-Public Use
  Company Number: FR-CELLTRION INC.-2017FR009564

PATIENT

DRUGS (5)
  1. STELARA [Suspect]
     Active Substance: USTEKINUMAB
     Indication: PSORIATIC ARTHROPATHY
     Dosage: 1 DF, UNK
     Route: 058
     Dates: start: 201603, end: 201702
  2. COSENTYX [Suspect]
     Active Substance: SECUKINUMAB
     Dosage: 0.142, 1 DF
     Route: 058
     Dates: start: 201703
  3. SIMPONI [Suspect]
     Active Substance: GOLIMUMAB
     Indication: PSORIATIC ARTHROPATHY
     Dosage: 0.035 DF, 1 DF, EVERY 4 WEEKS
     Route: 058
     Dates: start: 201509, end: 201511
  4. INFLECTRA [Suspect]
     Active Substance: INFLIXIMAB-DYYB
     Indication: PSORIATIC ARTHROPATHY
     Dosage: 3 MG/KG, UNK
     Route: 042
     Dates: start: 20151109, end: 20160210
  5. HUMIRA [Suspect]
     Active Substance: ADALIMUMAB
     Indication: PSORIATIC ARTHROPATHY
     Dosage: 1 DF EVERY 2 WEEKS
     Route: 058
     Dates: start: 201212, end: 201507

REACTIONS (6)
  - Wound [Not Recovered/Not Resolved]
  - Dermatitis psoriasiform [Not Recovered/Not Resolved]
  - Ear injury [Not Recovered/Not Resolved]
  - Rash pustular [Not Recovered/Not Resolved]
  - Folliculitis [Not Recovered/Not Resolved]
  - Nasal crusting [Not Recovered/Not Resolved]

NARRATIVE: CASE EVENT DATE: 201405
